FAERS Safety Report 24912616 (Version 1)
Quarter: 2025Q1

REPORT INFORMATION
  Report Type: Spontaneous
  Country: US (occurrence: US)
  Receive Date: 20250131
  Receipt Date: 20250131
  Transmission Date: 20250409
  Serious: No
  Sender: MERCK
  Company Number: US-009507513-2501USA009504

PATIENT
  Sex: Female
  Weight: 65.6 kg

DRUGS (18)
  1. WINREVAIR [Suspect]
     Active Substance: SOTATERCEPT-CSRK
  2. TYVASO DPI [Suspect]
     Active Substance: TREPROSTINIL
     Indication: Pulmonary arterial hypertension
     Dosage: 48 MICROGRAM, FOUR TIMES A DAY
     Dates: start: 20230314
  3. HUMALOG [Concomitant]
     Active Substance: INSULIN LISPRO
  4. CARAFATE [Concomitant]
     Active Substance: SUCRALFATE
  5. BACTRIM DS [Concomitant]
     Active Substance: SULFAMETHOXAZOLE\TRIMETHOPRIM
  6. PEPCID [Concomitant]
     Active Substance: FAMOTIDINE
  7. POTASSIUM CHLORIDE [Concomitant]
     Active Substance: POTASSIUM CHLORIDE
  8. ACTEMRA [Concomitant]
     Active Substance: TOCILIZUMAB
  9. PFIZER-BIONTECH COVID-19 VACCINE [Concomitant]
     Active Substance: TOZINAMERAN
  10. LANTUS SOLOSTAR [Concomitant]
     Active Substance: INSULIN GLARGINE
  11. SILDENAFIL CITRATE [Concomitant]
     Active Substance: SILDENAFIL CITRATE
  12. GABAPENTIN [Concomitant]
     Active Substance: GABAPENTIN
  13. ASPIRIN [Concomitant]
     Active Substance: ASPIRIN
  14. OXYGEN [Concomitant]
     Active Substance: OXYGEN
  15. PRAVASTATIN SODIUM [Concomitant]
     Active Substance: PRAVASTATIN SODIUM
  16. LOPERAMIDE [Concomitant]
     Active Substance: LOPERAMIDE
  17. TRIAMCINOLONE ACETONIDE [Concomitant]
     Active Substance: TRIAMCINOLONE ACETONIDE
  18. TORSEMIDE [Concomitant]
     Active Substance: TORSEMIDE

REACTIONS (2)
  - Full blood count increased [Unknown]
  - Haemoglobin increased [Unknown]
